FAERS Safety Report 11492195 (Version 1)
Quarter: 2015Q3

REPORT INFORMATION
  Report Type: Spontaneous
  Country: US (occurrence: None)
  Receive Date: 20150910
  Receipt Date: 20150910
  Transmission Date: 20151125
  Serious: No
  Sender: FDA-Public Use
  Company Number: US-MDT-ADR-2015-01762

PATIENT
  Age: 63 Year
  Sex: Female

DRUGS (2)
  1. CLONIDINE INTRATHECAL 500MCG/ML [Suspect]
     Active Substance: CLONIDINE
     Dosage: 43.92MCG/DAY
  2. BACLOFEN INTRATHECAL 500MCG/ML [Suspect]
     Active Substance: BACLOFEN
     Dosage: 131.8MCG/DAY

REACTIONS (1)
  - Muscle spasms [None]
